FAERS Safety Report 9583723 (Version 1)
Quarter: 2013Q4

REPORT INFORMATION
  Report Type: Spontaneous
  Country: US (occurrence: US)
  Receive Date: 20131002
  Receipt Date: 20131002
  Transmission Date: 20140711
  Serious: No
  Sender: FDA-Public Use
  Company Number: US-AMGEN-USASP2013049478

PATIENT
  Age: 62 Year
  Sex: Female
  Weight: 68.93 kg

DRUGS (8)
  1. ENBREL [Suspect]
     Indication: PRODUCT USED FOR UNKNOWN INDICATION
     Dosage: 50 MG, QWK
     Route: 058
  2. AMLODIPINE [Concomitant]
     Dosage: 10 MG, UNK
  3. MINIPRESS [Concomitant]
     Dosage: 5 MG, UNK
  4. ATENOLOL [Concomitant]
     Dosage: 100 MG, UNK
  5. QUINAPRIL [Concomitant]
     Dosage: 10 MG, UNK
  6. TENORMIN [Concomitant]
     Dosage: 25 MG, UNK
  7. CRESTOR [Concomitant]
     Dosage: 10 MG, UNK
  8. POTASSIUM CHLORIDE [Concomitant]
     Dosage: 10 MEQ, UNK

REACTIONS (3)
  - Injection site infection [Unknown]
  - Injection site erythema [Unknown]
  - Injection site pain [Unknown]
